FAERS Safety Report 10191216 (Version 1)
Quarter: 2014Q2

REPORT INFORMATION
  Report Type: Spontaneous
  Country: US (occurrence: None)
  Receive Date: 20140522
  Receipt Date: 20140522
  Transmission Date: 20141212
  Serious: Yes (Other)
  Sender: FDA-Public Use
  Company Number: None

PATIENT
  Sex: Female

DRUGS (1)
  1. FENTANYL [Suspect]
     Indication: BACK PAIN
     Dosage: 2 PATCHES Q72HRS TRANSDERMAL
     Route: 062
     Dates: start: 20140409

REACTIONS (3)
  - Skin burning sensation [None]
  - Scar [None]
  - Skin exfoliation [None]
